FAERS Safety Report 23145884 (Version 3)
Quarter: 2024Q2

REPORT INFORMATION
  Report Type: Spontaneous
  Country: DE (occurrence: DE)
  Receive Date: 20231104
  Receipt Date: 20240515
  Transmission Date: 20240716
  Serious: Yes (Hospitalization, Other)
  Sender: FDA-Public Use
  Company Number: DE-KRKA-DE2023K06069STU

PATIENT
  Age: 85 Year
  Sex: Female
  Weight: 40 kg

DRUGS (7)
  1. LENALIDOMIDE [Suspect]
     Active Substance: LENALIDOMIDE
     Indication: Plasma cell myeloma
     Dosage: 15 MILLIGRAM, ONCE A DAY,15 MG/DAY CYCLE 1-21
     Route: 048
     Dates: start: 20230322, end: 20230523
  2. LENALIDOMIDE [Suspect]
     Active Substance: LENALIDOMIDE
     Dosage: 10 MILLIGRAM, ONCE A DAY
     Route: 048
     Dates: start: 20230524
  3. DARATUMUMAB [Suspect]
     Active Substance: DARATUMUMAB
     Indication: Plasma cell myeloma
     Dosage: 1800 MILLIGRAM, ONCE A DAY,1800 MG/DAY CYCLE 1, 8, 15, 22
     Route: 058
     Dates: start: 20230322
  4. DEXAMETHASONE [Suspect]
     Active Substance: DEXAMETHASONE
     Indication: Plasma cell myeloma
     Dosage: 20 MILLIGRAM, ONCE A DAY,20 MG/DAY CYCLE 1,8,15,22
     Route: 065
     Dates: start: 20230322, end: 20231213
  5. BISOPROLOL [Concomitant]
     Active Substance: BISOPROLOL\BISOPROLOL FUMARATE
     Indication: Atrial fibrillation
     Dosage: 2.5 MILLIGRAM, ONCE A DAY
     Route: 048
     Dates: start: 201912
  6. EDOXABAN TOSYLATE [Concomitant]
     Active Substance: EDOXABAN TOSYLATE
     Indication: Atrial fibrillation
     Dosage: 30 MILLIGRAM, ONCE A DAY
     Route: 048
     Dates: start: 201912
  7. VALSARTAN [Concomitant]
     Active Substance: VALSARTAN
     Indication: Atrial fibrillation
     Dosage: 80 MILLIGRAM
     Route: 048
     Dates: start: 201912

REACTIONS (6)
  - Pancytopenia [Recovered/Resolved]
  - Atrial fibrillation [Recovered/Resolved]
  - Leukopenia [Recovered/Resolved]
  - Aortic stenosis [Unknown]
  - Dyspnoea [Recovered/Resolved]
  - Nausea [Recovered/Resolved]

NARRATIVE: CASE EVENT DATE: 20230412
